FAERS Safety Report 10409137 (Version 2)
Quarter: 2014Q3

REPORT INFORMATION
  Report Type: Report from Study
  Country: NL (occurrence: NL)
  Receive Date: 20140826
  Receipt Date: 20140826
  Transmission Date: 20150326
  Serious: Yes (Hospitalization, Other)
  Sender: FDA-Public Use
  Company Number: PHHY2012NL118468

PATIENT
  Sex: Female

DRUGS (7)
  1. ZOMETA [Suspect]
     Active Substance: ZOLEDRONIC ACID
     Dosage: 4 MG/100ML, EVERY FOUR WEEKS
     Route: 042
     Dates: start: 20120925
  2. ZOMETA [Suspect]
     Active Substance: ZOLEDRONIC ACID
     Dosage: 4 MG/100ML, EVERY FOUR WEEKS
     Route: 042
     Dates: start: 20131231
  3. ZOMETA [Suspect]
     Active Substance: ZOLEDRONIC ACID
     Dosage: 4 MG/100 ML EVERY 28 DAYS
     Route: 042
     Dates: start: 20121120
  4. ZOMETA [Suspect]
     Active Substance: ZOLEDRONIC ACID
     Dosage: 4 MG/100ML, EVERY FOUR WEEKS
     Route: 042
     Dates: start: 20140128
  5. HORMONES NOS [Concomitant]
     Active Substance: UNSPECIFIED INGREDIENT
     Dosage: UNK UKN, UNK
  6. ZOMETA [Suspect]
     Active Substance: ZOLEDRONIC ACID
     Dosage: 4 MG/100 ML EVERY 28 DAYS
     Route: 042
     Dates: start: 20121023
  7. ZOMETA [Suspect]
     Active Substance: ZOLEDRONIC ACID
     Indication: BREAST CANCER METASTATIC
     Dosage: 4 MG/100 ML EVERY 28 DAYS
     Route: 042
     Dates: start: 20120117

REACTIONS (4)
  - Terminal state [Unknown]
  - Breast cancer metastatic [Unknown]
  - General physical condition abnormal [Unknown]
  - Malignant neoplasm progression [Unknown]

NARRATIVE: CASE EVENT DATE: 201212
